FAERS Safety Report 25842731 (Version 1)
Quarter: 2025Q3

REPORT INFORMATION
  Report Type: Spontaneous
  Country: US (occurrence: US)
  Receive Date: 20250924
  Receipt Date: 20250924
  Transmission Date: 20251020
  Serious: Yes (Other)
  Sender: PFIZER
  Company Number: US-PFIZER INC-202500188771

PATIENT
  Age: 17 Year
  Sex: Female

DRUGS (1)
  1. CIBINQO [Suspect]
     Active Substance: ABROCITINIB

REACTIONS (1)
  - Condition aggravated [Not Recovered/Not Resolved]
